FAERS Safety Report 5251406-2 (Version None)
Quarter: 2007Q1

REPORT INFORMATION
  Report Type: 
  Country: None (occurrence: None)
  Receive Date: 20070228
  Receipt Date: 20060505
  Transmission Date: 20070707
  Serious: No
  Sender: FDA-Public Use
  Company Number: US-GLAXOSMITHKLINE-A0604503A

PATIENT
  Sex: Female

DRUGS (3)
  1. LAMICTAL [Suspect]
     Indication: BIPOLAR DISORDER
     Dosage: 25MG PER DAY
     Route: 048
     Dates: start: 20060503
  2. SEROQUEL [Suspect]
     Dosage: 800MG PER DAY
     Dates: start: 20060503
  3. UNKNOWN [Concomitant]

REACTIONS (4)
  - DYSARTHRIA [None]
  - GLOSSODYNIA [None]
  - SOMNOLENCE [None]
  - SWOLLEN TONGUE [None]
